FAERS Safety Report 25334165 (Version 4)
Quarter: 2025Q2

REPORT INFORMATION
  Report Type: Report from Study
  Country: CA (occurrence: CA)
  Receive Date: 20250520
  Receipt Date: 20250605
  Transmission Date: 20250717
  Serious: Yes (Other)
  Sender: JOHNSON AND JOHNSON
  Company Number: CA-JNJFOC-20250518397

PATIENT
  Age: 56 Year
  Sex: Male

DRUGS (2)
  1. SIMPONI [Suspect]
     Active Substance: GOLIMUMAB
     Indication: Rheumatoid arthritis
     Dosage: STRENGTH: 50 MG/0.5 ML
     Route: 058
     Dates: start: 20250425
  2. SIMPONI [Suspect]
     Active Substance: GOLIMUMAB
     Route: 058

REACTIONS (10)
  - Hepatic infection [Unknown]
  - Large intestine polyp [Unknown]
  - Barrett^s oesophagus [Unknown]
  - Abdominal pain lower [Recovering/Resolving]
  - Nausea [Recovered/Resolved]
  - Headache [Recovered/Resolved]
  - Chest pain [Unknown]
  - Pruritus [Unknown]
  - Stress [Unknown]
  - Anxiety [Unknown]
